FAERS Safety Report 7432404-7 (Version None)
Quarter: 2011Q2

REPORT INFORMATION
  Report Type: 
  Country: None (occurrence: None)
  Receive Date: 20110422
  Receipt Date: 20110418
  Transmission Date: 20111010
  Serious: Yes (Other)
  Sender: FDA-Public Use
  Company Number: JP-PFIZER INC-2011032697

PATIENT
  Age: 59 Year
  Sex: Male
  Weight: 73.1 kg

DRUGS (1)
  1. SUTENT [Suspect]
     Indication: RENAL CELL CARCINOMA
     Dosage: 37.5 MG, A DAY
     Route: 048
     Dates: start: 20101210, end: 20110203

REACTIONS (5)
  - INTERSTITIAL LUNG DISEASE [None]
  - PYREXIA [None]
  - VIRAL INFECTION [None]
  - VOMITING [None]
  - DIARRHOEA [None]
